FAERS Safety Report 24589576 (Version 1)
Quarter: 2024Q4

REPORT INFORMATION
  Report Type: Spontaneous
  Country: US (occurrence: US)
  Receive Date: 20241107
  Receipt Date: 20241107
  Transmission Date: 20250115
  Serious: Yes (Hospitalization, Other)
  Sender: BRISTOL-MYERS SQUIBB COMPANY
  Company Number: US-BRISTOL-MYERS SQUIBB COMPANY-2024-172866

PATIENT
  Age: 81 Year
  Sex: Female
  Weight: 56.25 kg

DRUGS (5)
  1. POMALYST [Suspect]
     Active Substance: POMALIDOMIDE
     Indication: Plasma cell myeloma
     Dosage: ONE CAPSULE DAILY ON DAYS 1-21 OF CYCLE
     Route: 048
     Dates: start: 20241004
  2. NINLARO [Concomitant]
     Active Substance: IXAZOMIB CITRATE
  3. KETOROLAC [Concomitant]
     Active Substance: KETOROLAC TROMETHAMINE
  4. METOPROLOL [Concomitant]
     Active Substance: METOPROLOL
  5. PANTOPRAZOLE [Concomitant]
     Active Substance: PANTOPRAZOLE

REACTIONS (4)
  - Diarrhoea [Unknown]
  - Intestinal perforation [Unknown]
  - Abscess intestinal [Unknown]
  - Pulmonary congestion [Unknown]
